FAERS Safety Report 4384199-1 (Version None)
Quarter: 2004Q2

REPORT INFORMATION
  Report Type: 
  Country: None (occurrence: None)
  Receive Date: 20040623
  Receipt Date: 20040623
  Transmission Date: 20050107
  Serious: Yes (Hospitalization)
  Sender: FDA-Public Use
  Company Number: None

PATIENT
  Age: 58 Year
  Sex: Male
  Weight: 138.3 kg

DRUGS (2)
  1. ASPIRIN [Suspect]
     Indication: CORONARY ARTERY DISEASE
     Dosage: 81MG DAILY ORAL
     Route: 048
  2. WARFARIN 4MG AND 6MG [Suspect]
     Indication: AORTIC VALVE REPLACEMENT
     Dosage: 4MG,6MG ALTERNATING ORAL
     Route: 048
     Dates: start: 20020601, end: 20040307

REACTIONS (6)
  - HYPOTENSION [None]
  - RENAL FAILURE ACUTE [None]
  - RENAL HAEMORRHAGE [None]
  - RENAL INFARCT [None]
  - RETROPERITONEAL HAEMATOMA [None]
  - VOMITING [None]
